FAERS Safety Report 19303530 (Version 4)
Quarter: 2021Q3

REPORT INFORMATION
  Report Type: Spontaneous
  Country: BR (occurrence: BR)
  Receive Date: 20210525
  Receipt Date: 20210713
  Transmission Date: 20211014
  Serious: Yes (Other)
  Sender: FDA-Public Use
  Company Number: BR-ROCHE-2835877

PATIENT
  Age: 43 Year
  Sex: Female

DRUGS (4)
  1. DIPYRONE [Suspect]
     Active Substance: DIPYRONE
     Indication: MALAISE
     Dosage: 2 DF, QD
     Route: 048
     Dates: start: 20210511, end: 20210511
  2. DIPYRONE [Suspect]
     Active Substance: DIPYRONE
     Indication: HEADACHE
     Route: 065
  3. XOLAIR [Suspect]
     Active Substance: OMALIZUMAB
     Indication: CHRONIC SPONTANEOUS URTICARIA
     Route: 065
     Dates: start: 20210510
  4. LORATADINE. [Concomitant]
     Active Substance: LORATADINE
     Indication: PRODUCT USED FOR UNKNOWN INDICATION
     Dosage: 4 DF, QD
     Route: 065

REACTIONS (19)
  - Asthenia [Recovered/Resolved]
  - Urticaria [Recovered/Resolved]
  - Eyelid oedema [Recovered/Resolved]
  - Headache [Recovered/Resolved]
  - Malaise [Recovered/Resolved]
  - Albumin globulin ratio abnormal [Recovered/Resolved]
  - Pain [Recovered/Resolved]
  - Blood alkaline phosphatase increased [Recovered/Resolved]
  - Application site pain [Recovered/Resolved]
  - Application site papules [Recovered/Resolved]
  - Drug intolerance [Unknown]
  - C-reactive protein abnormal [Recovered/Resolved]
  - Urticaria [Recovered/Resolved]
  - Pruritus [Recovered/Resolved]
  - Haemoglobin abnormal [Recovered/Resolved]
  - Angioedema [Recovered/Resolved]
  - Red blood cell sedimentation rate abnormal [Recovered/Resolved]
  - Diarrhoea [Recovered/Resolved]
  - Globulin abnormal [Recovered/Resolved]

NARRATIVE: CASE EVENT DATE: 20210510
